FAERS Safety Report 22182697 (Version 1)
Quarter: 2023Q2

REPORT INFORMATION
  Report Type: Spontaneous
  Country: CA (occurrence: CA)
  Receive Date: 20230406
  Receipt Date: 20230406
  Transmission Date: 20230721
  Serious: Yes (Other)
  Sender: FDA-Public Use
  Company Number: CA-BAYER-2021A241941

PATIENT
  Sex: Male

DRUGS (2)
  1. RIVAROXABAN [Suspect]
     Active Substance: RIVAROXABAN
     Indication: Product used for unknown indication
     Dosage: UNK
     Route: 048
     Dates: start: 2018, end: 202106
  2. COVID-19 VACCINE [Concomitant]
     Dosage: SECOND DOSE
     Dates: start: 20210506

REACTIONS (1)
  - Thrombosis [Unknown]
